FAERS Safety Report 10189857 (Version 1)
Quarter: 2014Q2

REPORT INFORMATION
  Report Type: Spontaneous
  Country: US (occurrence: US)
  Receive Date: 20140522
  Receipt Date: 20140522
  Transmission Date: 20141212
  Serious: Yes (Other)
  Sender: FDA-Public Use
  Company Number: US-SANOFI-AVENTIS-2013SA063332

PATIENT
  Age: 59 Year
  Sex: Male

DRUGS (3)
  1. LANTUS SOLOSTAR [Suspect]
     Indication: DIABETES MELLITUS
     Dosage: DOSE:100 UNIT(S)
  2. SOLOSTAR [Suspect]
     Indication: DIABETES MELLITUS
  3. NOVOLOG [Concomitant]

REACTIONS (2)
  - Cataract [Unknown]
  - Visual impairment [Unknown]
